FAERS Safety Report 9559399 (Version 1)
Quarter: 2013Q3

REPORT INFORMATION
  Report Type: Spontaneous
  Country: US (occurrence: None)
  Receive Date: 20130906
  Receipt Date: 20130906
  Transmission Date: 20140515
  Serious: Yes (Other)
  Sender: FDA-Public Use
  Company Number: 163-POMAL-13070943

PATIENT
  Age: 83 Year
  Sex: Male
  Weight: 86.18 kg

DRUGS (7)
  1. POMALYST (POMALIDOMIDE) (4 MILLIGRAM, CAPSULES) [Suspect]
     Indication: PLASMA CELL MYELOMA
     Dosage: 4 MG, 21 IN 21 D, PO
     Route: 048
     Dates: start: 20130627
  2. COUMADIN (WARFARIN SODIUM) [Concomitant]
  3. BLOOD PRESSURE MEDICATION (CARDIOVASCULAR SYSTEM DRUGS) [Concomitant]
  4. LASIX (FUROSEMIDE) [Concomitant]
  5. SOME HERBS (HERBAL) [Concomitant]
  6. DEXAMETHASONE (DEXAMETHASONE) [Concomitant]
  7. WARFARIN (WARFARIN) [Concomitant]

REACTIONS (8)
  - Nervousness [None]
  - Flatulence [None]
  - Gait disturbance [None]
  - Visual impairment [None]
  - Pruritus [None]
  - Tremor [None]
  - Asthenia [None]
  - Fatigue [None]
